FAERS Safety Report 9922477 (Version 1)
Quarter: 2014Q1

REPORT INFORMATION
  Report Type: Spontaneous
  Country: US (occurrence: US)
  Receive Date: 20140225
  Receipt Date: 20140225
  Transmission Date: 20141002
  Serious: No
  Sender: FDA-Public Use
  Company Number: US-MYLANLABS-2013S1028549

PATIENT
  Sex: Female
  Weight: 47.63 kg

DRUGS (4)
  1. ATENOLOL TABLETS, USP [Suspect]
     Indication: MITRAL VALVE PROLAPSE
     Route: 048
  2. ATENOLOL TABLETS, USP [Suspect]
     Indication: OFF LABEL USE
     Route: 048
  3. NAPROXEN TABLETS, USP [Suspect]
  4. TYLENOL [Suspect]

REACTIONS (2)
  - Coeliac disease [Not Recovered/Not Resolved]
  - Laboratory test abnormal [Not Recovered/Not Resolved]
